FAERS Safety Report 6343969-0 (Version None)
Quarter: 2009Q3

REPORT INFORMATION
  Report Type: 
  Country: None (occurrence: None)
  Receive Date: 20090908
  Receipt Date: 20090824
  Transmission Date: 20100115
  Serious: Yes (Hospitalization)
  Sender: FDA-Public Use
  Company Number: CH-TEVA-208321ISR

PATIENT
  Age: 67 Year
  Sex: Female

DRUGS (3)
  1. ALENDRONIC ACID [Suspect]
     Indication: OSTEOPOROSIS
     Dates: start: 20020101, end: 20050101
  2. IBANDRONATE SODIUM [Concomitant]
     Indication: OSTEOPOROSIS
     Dates: start: 20050101
  3. CALCIUM CARBONATE [Concomitant]

REACTIONS (1)
  - FEMUR FRACTURE [None]
